FAERS Safety Report 6681812-0 (Version None)
Quarter: 2010Q2

REPORT INFORMATION
  Report Type: 
  Country: None (occurrence: None)
  Receive Date: 20100414
  Receipt Date: 20100313
  Transmission Date: 20101027
  Serious: Yes (Hospitalization)
  Sender: FDA-Public Use
  Company Number: PHHY2010US20648

PATIENT
  Sex: Male
  Weight: 84 kg

DRUGS (8)
  1. NEORAL [Suspect]
     Indication: HEART TRANSPLANT
     Dosage: UNK
     Dates: start: 19980124
  2. LISINOPRIL [Concomitant]
     Indication: BLOOD PRESSURE
     Dosage: 2.5 MG, QD
     Route: 048
     Dates: start: 20070911
  3. MYFORTIC [Concomitant]
     Indication: IMMUNOSUPPRESSION
     Dosage: 2160 MG, QD
     Dates: start: 20071013
  4. BACTRIM [Concomitant]
     Dosage: 400 MG, QD
     Route: 048
     Dates: start: 19980124
  5. BACTRIM [Concomitant]
     Dosage: 80 MG, QD
     Route: 048
     Dates: start: 19980124
  6. PREDNISOLONE [Concomitant]
     Dosage: 7.5 MG, QD
     Route: 048
     Dates: start: 19980124
  7. DIGOXIN [Concomitant]
     Indication: HEART RATE INCREASED
     Dosage: 125 MCG, DAILY
     Route: 048
     Dates: start: 20070911
  8. LASIX [Concomitant]
     Indication: OEDEMA
     Dosage: 40 MG, QD
     Dates: start: 20070911

REACTIONS (4)
  - CARDIAC FAILURE CONGESTIVE [None]
  - ELECTROCARDIOGRAM ABNORMAL [None]
  - HEART TRANSPLANT REJECTION [None]
  - LABORATORY TEST ABNORMAL [None]
